FAERS Safety Report 5706023-4 (Version None)
Quarter: 2008Q2

REPORT INFORMATION
  Report Type: 
  Country: None (occurrence: None)
  Receive Date: 20080415
  Receipt Date: 20080403
  Transmission Date: 20081010
  Serious: Yes (Hospitalization)
  Sender: FDA-Public Use
  Company Number: GB-TEVA-169826ISR

PATIENT
  Age: 82 Year
  Sex: Female

DRUGS (2)
  1. AMLODIPINE [Suspect]
     Route: 048
     Dates: start: 20061027
  2. AMLODIPINE BESILATE [Suspect]
     Indication: TRANSIENT ISCHAEMIC ATTACK
     Route: 048
     Dates: start: 20061227

REACTIONS (4)
  - CAROTID ARTERY BYPASS [None]
  - CEREBROVASCULAR ACCIDENT [None]
  - DEPRESSION [None]
  - MALAISE [None]
